FAERS Safety Report 19885989 (Version 2)
Quarter: 2021Q4

REPORT INFORMATION
  Report Type: Report from Study
  Country: EC (occurrence: EC)
  Receive Date: 20210927
  Receipt Date: 20211101
  Transmission Date: 20220304
  Serious: Yes (Other)
  Sender: FDA-Public Use
  Company Number: EC-MERCK HEALTHCARE KGAA-9266106

PATIENT
  Age: 79 Year
  Sex: Male

DRUGS (1)
  1. CETUXIMAB [Suspect]
     Active Substance: CETUXIMAB
     Indication: Head and neck cancer
     Dosage: 500 MG, MONTHLY (1/M)
     Route: 042
     Dates: start: 20210726

REACTIONS (8)
  - Immunodeficiency [Unknown]
  - Feeding disorder [Unknown]
  - Iron deficiency [Unknown]
  - Tongue blistering [Unknown]
  - Tongue eruption [Unknown]
  - Weight decreased [Unknown]
  - Hypokalaemia [Unknown]
  - Off label use [Unknown]

NARRATIVE: CASE EVENT DATE: 20210101
